FAERS Safety Report 6195949-6 (Version None)
Quarter: 2009Q2

REPORT INFORMATION
  Report Type: 
  Country: None (occurrence: None)
  Receive Date: 20090520
  Receipt Date: 20090514
  Transmission Date: 20091009
  Serious: Yes (Other)
  Sender: FDA-Public Use
  Company Number: ES-ABBOTT-09P-144-0573564-00

PATIENT
  Age: 35 Year
  Sex: Female
  Weight: 70 kg

DRUGS (6)
  1. SEVOFLURANE [Suspect]
     Indication: GENERAL ANAESTHESIA
     Route: 055
     Dates: start: 20090406, end: 20090406
  2. OXIDO NITROSOS [Suspect]
     Indication: GENERAL ANAESTHESIA
     Dates: start: 20090406, end: 20090406
  3. ANECTINE [Suspect]
     Indication: GENERAL ANAESTHESIA
     Route: 042
     Dates: start: 20090406, end: 20090406
  4. ATROPINA BRAUN [Suspect]
     Indication: GENERAL ANAESTHESIA
     Route: 042
     Dates: start: 20090406, end: 20090406
  5. FENTANEST [Suspect]
     Indication: GENERAL ANAESTHESIA
     Route: 042
     Dates: start: 20090406, end: 20090406
  6. PROPOFOL-ICI [Suspect]
     Indication: GENERAL ANAESTHESIA
     Route: 042
     Dates: start: 20090406, end: 20090406

REACTIONS (2)
  - RHABDOMYOLYSIS [None]
  - TRISMUS [None]
